FAERS Safety Report 7170720-7 (Version None)
Quarter: 2010Q4

REPORT INFORMATION
  Report Type: 
  Country: None (occurrence: None)
  Receive Date: 20101206
  Receipt Date: 20101130
  Transmission Date: 20110411
  Serious: Yes (Death)
  Sender: FDA-Public Use
  Company Number: 2010AC000575

PATIENT
  Sex: Female

DRUGS (1)
  1. DIGOXIN [Suspect]

REACTIONS (4)
  - ANXIETY [None]
  - HAEMATEMESIS [None]
  - PAIN [None]
  - THERAPEUTIC AGENT TOXICITY [None]
